FAERS Safety Report 6803266-3 (Version None)
Quarter: 2010Q2

REPORT INFORMATION
  Report Type: 
  Country: None (occurrence: None)
  Receive Date: 20100628
  Receipt Date: 20100429
  Transmission Date: 20101027
  Serious: No
  Sender: FDA-Public Use
  Company Number: US-ASTRAZENECA-2010SE18684

PATIENT
  Age: 84 Year
  Sex: Male

DRUGS (1)
  1. ZOLADEX [Suspect]
     Indication: PROSTATE CANCER
     Route: 058
     Dates: start: 20040101

REACTIONS (9)
  - DRY SKIN [None]
  - FLUID RETENTION [None]
  - HOT FLUSH [None]
  - LIMB INJURY [None]
  - OEDEMA PERIPHERAL [None]
  - PRURITUS [None]
  - SKIN DISCOLOURATION [None]
  - WEIGHT INCREASED [None]
  - WOUND [None]
